FAERS Safety Report 4506435-0 (Version None)
Quarter: 2004Q4

REPORT INFORMATION
  Report Type: 
  Country: None (occurrence: None)
  Receive Date: 20041117
  Receipt Date: 20041110
  Transmission Date: 20050328
  Serious: Yes (Other)
  Sender: FDA-Public Use
  Company Number: MK200411-0151-1

PATIENT
  Age: 32 Year
  Sex: Female

DRUGS (2)
  1. HYDROCODONE/APAP (LORTAB) [Suspect]
     Dosage: 5MG, PRN
  2. LEVOTHYROXINE SODIUM [Concomitant]

REACTIONS (3)
  - ABORTION SPONTANEOUS [None]
  - DRUG EXPOSURE DURING PREGNANCY [None]
  - PREGNANCY [None]
